FAERS Safety Report 4360928-8 (Version None)
Quarter: 2004Q2

REPORT INFORMATION
  Report Type: 
  Country: None (occurrence: None)
  Receive Date: 20040520
  Receipt Date: 20040512
  Transmission Date: 20050107
  Serious: Yes (Hospitalization)
  Sender: FDA-Public Use
  Company Number: US-JNJFOC-20040502577

PATIENT
  Sex: Female

DRUGS (4)
  1. REMICADE [Suspect]
     Route: 042
  2. REMICADE [Suspect]
     Indication: RHEUMATOID ARTHRITIS
     Route: 042
  3. IMURAN [Concomitant]
     Indication: RHEUMATOID ARTHRITIS
  4. BEXTRA [Concomitant]
     Indication: RHEUMATOID ARTHRITIS

REACTIONS (3)
  - APLASTIC ANAEMIA [None]
  - BLOOD ALKALINE PHOSPHATASE INCREASED [None]
  - PANCYTOPENIA [None]
